FAERS Safety Report 7059761-8 (Version None)
Quarter: 2010Q4

REPORT INFORMATION
  Report Type: 
  Country: None (occurrence: None)
  Receive Date: 20101025
  Receipt Date: 20101018
  Transmission Date: 20110411
  Serious: Yes (Hospitalization)
  Sender: FDA-Public Use
  Company Number: FR-PFIZER INC-2010131473

PATIENT
  Age: 44 Year
  Sex: Male

DRUGS (17)
  1. FLUCONAZOLE [Suspect]
     Indication: INFECTION
     Dosage: UNK
     Route: 051
     Dates: start: 20100603, end: 20100612
  2. FLUCONAZOLE [Suspect]
     Dosage: 100 MG, 1X/DAY
     Route: 048
     Dates: start: 20100613, end: 20100618
  3. VANCOMYCIN [Suspect]
     Indication: INFECTION
     Dosage: 500 MG, 4X/DAY
     Route: 051
     Dates: start: 20100603, end: 20100611
  4. TAZOCILLINE [Suspect]
     Indication: INFECTION
     Dosage: 4 G, 1X/DAY
     Route: 051
     Dates: start: 20100603, end: 20100610
  5. AMIKACIN [Suspect]
     Indication: INFECTION
     Dosage: 1 G, 1X/DAY
     Route: 051
     Dates: start: 20100603, end: 20100611
  6. ACYCLOVIR [Suspect]
     Indication: INFECTION
     Dosage: 250 MG, 4X/DAY
     Route: 051
     Dates: start: 20100603, end: 20100614
  7. PERIKABIVEN [Concomitant]
  8. CORTANCYL [Concomitant]
  9. IXEL [Concomitant]
  10. NUREFLEX [Concomitant]
  11. ACETAMINOPHEN [Concomitant]
  12. ALPRAZOLAM [Concomitant]
  13. RIVOTRIL [Concomitant]
  14. TAMSULOSIN HCL [Concomitant]
  15. VITAMIN B1 AND B6 [Concomitant]
  16. SPECIAFOLDINE [Concomitant]
  17. DURAGESIC-100 [Concomitant]

REACTIONS (4)
  - PRURITUS [None]
  - PURPURA [None]
  - RASH [None]
  - THROMBOCYTOPENIA [None]
